FAERS Safety Report 4533942-7 (Version None)
Quarter: 2004Q4

REPORT INFORMATION
  Report Type: 
  Country: None (occurrence: None)
  Receive Date: 20041214
  Receipt Date: 20041028
  Transmission Date: 20050328
  Serious: Yes (Hospitalization)
  Sender: FDA-Public Use
  Company Number: S04-USA-07142-01

PATIENT
  Age: 20 Year
  Sex: Male

DRUGS (2)
  1. LEXAPRO [Suspect]
     Indication: ATTENTION DEFICIT/HYPERACTIVITY DISORDER
     Dosage: 10 MG QD PO
     Route: 048
     Dates: start: 20040927, end: 20041025
  2. ALEVE [Suspect]
     Dosage: 30 TABLET ONCE PO
     Route: 048
     Dates: start: 20041025, end: 20041025

REACTIONS (3)
  - CONFUSIONAL STATE [None]
  - MULTIPLE DRUG OVERDOSE INTENTIONAL [None]
  - SUICIDE ATTEMPT [None]
